FAERS Safety Report 6840000-5 (Version None)
Quarter: 2010Q3

REPORT INFORMATION
  Report Type: 
  Country: None (occurrence: None)
  Receive Date: 20100714
  Receipt Date: 20100707
  Transmission Date: 20110219
  Serious: Yes (Death, Other)
  Sender: FDA-Public Use
  Company Number: FR-GENZYME-THYM-1001604

PATIENT
  Age: 17 Year
  Sex: Female

DRUGS (7)
  1. THYMOGLOBULIN [Suspect]
     Indication: HEART TRANSPLANT
     Dosage: UNK
     Route: 042
  2. CYCLOSPORINE [Concomitant]
     Indication: HEART TRANSPLANT
     Dosage: 5 MG/KG, QD
     Route: 042
  3. CYCLOSPORINE [Concomitant]
     Route: 048
  4. CORTISONE [Concomitant]
     Indication: HEART TRANSPLANT
     Dosage: 1 MG/KG, UNK
     Route: 048
  5. CORTISONE [Concomitant]
     Route: 048
  6. SIROLIMUS [Concomitant]
     Indication: IMMUNOSUPPRESSION
  7. TACROLIMUS [Concomitant]
     Indication: IMMUNOSUPPRESSION

REACTIONS (4)
  - EPSTEIN-BARR VIRUS INFECTION [None]
  - GRAND MAL CONVULSION [None]
  - PSEUDOMONAL SEPSIS [None]
  - REVERSIBLE POSTERIOR LEUKOENCEPHALOPATHY SYNDROME [None]
